FAERS Safety Report 6208054-7 (Version None)
Quarter: 2009Q2

REPORT INFORMATION
  Report Type: 
  Country: None (occurrence: None)
  Receive Date: 20090529
  Receipt Date: 20090407
  Transmission Date: 20091009
  Serious: No
  Sender: FDA-Public Use
  Company Number: US-KINGPHARMUSA00001-K200900401

PATIENT
  Sex: Female
  Weight: 52.154 kg

DRUGS (1)
  1. FLECTOR [Suspect]
     Indication: PAIN IN EXTREMITY
     Dosage: 3-4 PATCHES, BID
     Route: 061
     Dates: start: 20090401, end: 20090405

REACTIONS (1)
  - HEADACHE [None]
